FAERS Safety Report 9518850 (Version 1)
Quarter: 2013Q3

REPORT INFORMATION
  Report Type: Spontaneous
  Country: JP (occurrence: None)
  Receive Date: 20130910
  Receipt Date: 20130910
  Transmission Date: 20140515
  Serious: Yes (Other)
  Sender: FDA-Public Use
  Company Number: None

PATIENT
  Sex: Female

DRUGS (1)
  1. BREATHTEK UBT FOR H-PYLORI [Suspect]
     Indication: HELICOBACTER TEST
     Dosage: ORAL
     Route: 048

REACTIONS (1)
  - Altered state of consciousness [None]
